FAERS Safety Report 8792501 (Version 2)
Quarter: 2012Q4

REPORT INFORMATION
  Report Type: 
  Country: US (occurrence: US)
  Receive Date: 20120918
  Receipt Date: 20121012
  Transmission Date: 20130627
  Serious: Yes (Other)
  Sender: FDA-Public Use
  Company Number: PHEH2012US017289

PATIENT
  Age: 49 Year
  Sex: Female

DRUGS (4)
  1. GILENYA [Suspect]
     Indication: MULTIPLE SCLEROSIS
     Dosage: 0.5 mg, QD
     Route: 048
     Dates: start: 20120827, end: 20120829
  2. BENICAR [Concomitant]
     Indication: BLOOD PRESSURE INCREASED
     Dosage: Dose: 1.25 daily
     Route: 048
  3. XANAX [Concomitant]
     Indication: ANXIETY
     Dosage: UNK UKN,Dose: 0.25
     Route: 048
  4. MULTIVITAMINS [Concomitant]

REACTIONS (18)
  - Hemiparesis [Unknown]
  - Cold sweat [Unknown]
  - Swollen tongue [Unknown]
  - Middle insomnia [Unknown]
  - Hyperhidrosis [Unknown]
  - Abnormal dreams [Unknown]
  - Ageusia [Unknown]
  - Nausea [Recovered/Resolved]
  - Palpitations [Unknown]
  - Fatigue [Unknown]
  - Decreased appetite [Unknown]
  - Oedema peripheral [Unknown]
  - Pain [Unknown]
  - Visual impairment [Unknown]
  - Malaise [Unknown]
  - Myalgia [Recovered/Resolved]
  - Diarrhoea [Unknown]
  - Headache [Recovered/Resolved]
